FAERS Safety Report 26073662 (Version 1)
Quarter: 2025Q4

REPORT INFORMATION
  Report Type: Spontaneous
  Country: CA (occurrence: CA)
  Receive Date: 20251121
  Receipt Date: 20251121
  Transmission Date: 20260117
  Serious: Yes (Hospitalization)
  Sender: CELLTRION
  Company Number: CA-CELLTRION INC.-2025CA041680

PATIENT

DRUGS (7)
  1. TRASTUZUMAB [Suspect]
     Active Substance: TRASTUZUMAB
     Indication: Colorectal cancer metastatic
     Dosage: 530 MILLIGRAM, 1 EVERY 3 WEEKS
     Route: 041
  2. APIXABAN [Suspect]
     Active Substance: APIXABAN
     Indication: Deep vein thrombosis
     Dosage: 5 MILLIGRAM, 1 EVERY .5 DAY
     Route: 048
  3. FLUOROURACIL [Suspect]
     Active Substance: FLUOROURACIL
     Indication: Colorectal cancer metastatic
     Dosage: 832 MILLIGRAM, 1 EVERY 2 WEEKS
     Route: 042
  4. FLUOROURACIL [Suspect]
     Active Substance: FLUOROURACIL
     Dosage: 4992 MILLIGRAM, 1 EVERY 2 WEEKS
     Route: 042
  5. OXALIPLATIN [Suspect]
     Active Substance: OXALIPLATIN
     Indication: Colorectal cancer metastatic
     Dosage: 177 MILLIGRAM, 1 EVERY 2 WEEKS
     Route: 041
  6. LEUCOVORIN CALCIUM [Suspect]
     Active Substance: LEUCOVORIN CALCIUM
     Indication: Colorectal cancer metastatic
     Dosage: 832 MILLIGRAM, 1 EVERY 2 WEEKS
     Route: 041
  7. TUCATINIB [Suspect]
     Active Substance: TUCATINIB
     Indication: Colorectal cancer metastatic
     Dosage: 300 MILLIGRAM, 1 EVERY .5  DAYS
     Route: 048

REACTIONS (2)
  - Stoma site haemorrhage [Recovered/Resolved]
  - Intentional product use issue [Unknown]
